FAERS Safety Report 12372184 (Version 2)
Quarter: 2016Q2

REPORT INFORMATION
  Report Type: Spontaneous
  Country: IT (occurrence: IT)
  Receive Date: 20160516
  Receipt Date: 20160520
  Transmission Date: 20160815
  Serious: Yes (Life-Threatening, Hospitalization)
  Sender: FDA-Public Use
  Company Number: IT-ASTRAZENECA-2016SE50691

PATIENT
  Age: 20522 Day
  Sex: Female

DRUGS (9)
  1. OMEPRAZOLE. [Suspect]
     Active Substance: OMEPRAZOLE
     Indication: SUICIDE ATTEMPT
     Dosage: 7 DOSAGE FORM TOTAL, ONCE/SINGLE ADMINISTARTION
     Route: 048
     Dates: start: 20160421, end: 20160421
  2. HALDOL [Suspect]
     Active Substance: HALOPERIDOL
     Indication: SUICIDE ATTEMPT
     Dosage: 2 MG/ML SOLUTION, 20 GTT TOTAL, ONCE
     Route: 048
     Dates: start: 20160421, end: 20160421
  3. ENTUMIN [Suspect]
     Active Substance: CLOTHIAPINE
     Indication: SUICIDE ATTEMPT
     Dosage: 100 MG/ML SOLUTION, 5 MILLILITERS TOTAL, ONCE
     Route: 048
     Dates: start: 20160421, end: 20160421
  4. SERENASE [Concomitant]
     Active Substance: HALOPERIDOL
     Indication: SCHIZOPHRENIA
     Dosage: 2 MG/ML SOLUTION, 25 GTT/DAY
     Route: 048
  5. OXIBUTININA [Suspect]
     Active Substance: OXYBUTYNIN
     Indication: SUICIDE ATTEMPT
     Dosage: 10 DOSAGE FORM, 50 MILLIGRAMS TOTAL, ONCE
     Route: 048
     Dates: start: 20160421, end: 20160421
  6. SERETIDE [Concomitant]
     Active Substance: FLUTICASONE PROPIONATE\SALMETEROL XINAFOATE
     Dosage: 25/250 MICROGRAMS PRESSURIZED SUSPENSION, 2 DOSAGE FORM/DAY
     Route: 055
  7. AMLODIPINE BESYLATE. [Suspect]
     Active Substance: AMLODIPINE BESYLATE
     Indication: SUICIDE ATTEMPT
     Dosage: 40 MILLIGRAMS TOTAL, ONCE/SINGLE ADMINISTARTION
     Route: 048
     Dates: start: 20160421, end: 20160421
  8. AKINETON [Suspect]
     Active Substance: BIPERIDEN HYDROCHLORIDE
     Indication: SUICIDE ATTEMPT
     Dosage: 30 DOSAGE FORM TOTAL, 120 MILLIGRAMS TOTAL, ONCE
     Route: 048
     Dates: start: 20160421, end: 20160421
  9. DELORAZEPAM [Concomitant]
     Active Substance: DELORAZEPAM
     Indication: SCHIZOPHRENIA
     Dosage: SOLUTION, 30 GTT/DAY
     Route: 048

REACTIONS (4)
  - Suicide attempt [Unknown]
  - Aggression [Recovered/Resolved]
  - Agitation [Recovered/Resolved]
  - Drug abuse [Recovered/Resolved]

NARRATIVE: CASE EVENT DATE: 20160421
